FAERS Safety Report 10005696 (Version 2)
Quarter: 2014Q2

REPORT INFORMATION
  Report Type: Spontaneous
  Country: US (occurrence: US)
  Receive Date: 20140313
  Receipt Date: 20140421
  Transmission Date: 20141212
  Serious: No
  Sender: FDA-Public Use
  Company Number: US-BIOGENIDEC-2014BI021304

PATIENT
  Age: 39 Year
  Sex: Female

DRUGS (17)
  1. TECFIDERA [Suspect]
     Indication: MULTIPLE SCLEROSIS
     Route: 048
  2. TECFIDERA [Suspect]
     Indication: MULTIPLE SCLEROSIS
     Dates: start: 201308, end: 201401
  3. TECFIDERA [Suspect]
     Indication: MULTIPLE SCLEROSIS
     Dates: start: 201312, end: 201401
  4. TECFIDERA [Suspect]
     Indication: MULTIPLE SCLEROSIS
     Route: 048
     Dates: start: 20140317
  5. HYDROXYZINE HCL [Concomitant]
  6. ESCITALOPRAM OXALATE [Concomitant]
  7. LORATADINE ALLERGY [Concomitant]
  8. GABAPENTIN [Concomitant]
  9. BACLOFEN [Concomitant]
  10. OMEPRAZOLE [Concomitant]
  11. GLIPIZIDE ER [Concomitant]
  12. LISINOPRIL [Concomitant]
  13. NORCO [Concomitant]
  14. IBUPROFEN [Concomitant]
  15. ROPINIROLE HCL [Concomitant]
  16. TYLENOL [Concomitant]
  17. DIAZEPAM [Concomitant]

REACTIONS (10)
  - Influenza [Recovered/Resolved]
  - Mental impairment [Recovered/Resolved]
  - Stress [Recovered/Resolved]
  - Paraesthesia [Not Recovered/Not Resolved]
  - Nausea [Recovered/Resolved]
  - Flushing [Unknown]
  - Erythema [Recovered/Resolved]
  - Vomiting [Recovered/Resolved]
  - Abdominal discomfort [Recovered/Resolved]
  - Gastroenteritis viral [Unknown]
